FAERS Safety Report 4431818-7 (Version None)
Quarter: 2004Q3

REPORT INFORMATION
  Report Type: 
  Country: None (occurrence: None)
  Receive Date: 20040825
  Receipt Date: 20040818
  Transmission Date: 20050211
  Serious: Yes (Hospitalization)
  Sender: FDA-Public Use
  Company Number: US-JNJFOC-20040503780

PATIENT
  Sex: Female
  Weight: 53.98 kg

DRUGS (9)
  1. DURAGESIC [Suspect]
     Route: 062
     Dates: start: 20031117
  2. DURAGESIC [Suspect]
     Route: 062
     Dates: start: 20031117
  3. FOSAMAX [Concomitant]
     Indication: OSTEOPOROSIS
     Route: 049
  4. LISINOPRIL [Concomitant]
     Route: 049
  5. LACTULOSE [Concomitant]
     Indication: CONSTIPATION
     Route: 049
  6. COLACE [Concomitant]
     Indication: CONSTIPATION
     Route: 049
  7. VITAMIN D [Concomitant]
     Route: 049
  8. COMPAZINE [Concomitant]
     Indication: NAUSEA
     Route: 049
  9. CALCIUM [Concomitant]
     Route: 049

REACTIONS (6)
  - ABSCESS INTESTINAL [None]
  - ANOREXIA [None]
  - CHEST INJURY [None]
  - DIVERTICULITIS [None]
  - RIB FRACTURE [None]
  - WEIGHT DECREASED [None]
